FAERS Safety Report 21333254 (Version 1)
Quarter: 2022Q3

REPORT INFORMATION
  Report Type: Spontaneous
  Country: NO (occurrence: NO)
  Receive Date: 20220914
  Receipt Date: 20220914
  Transmission Date: 20221027
  Serious: Yes (Hospitalization, Other)
  Sender: FDA-Public Use
  Company Number: None

PATIENT
  Age: 43 Year
  Sex: Female
  Weight: 63 kg

DRUGS (3)
  1. ABILIFY [Interacting]
     Active Substance: ARIPIPRAZOLE
     Indication: Schizoaffective disorder
     Dosage: 10 MG
     Route: 065
     Dates: start: 2019, end: 2022
  2. FLUOXETINE HYDROCHLORIDE [Interacting]
     Active Substance: FLUOXETINE HYDROCHLORIDE
     Indication: Product used for unknown indication
     Dosage: 20 MG
     Route: 048
     Dates: start: 2021, end: 2022
  3. LITHIUM SULFATE [Interacting]
     Active Substance: LITHIUM SULFATE
     Indication: Product used for unknown indication
     Dosage: 83 MG
     Route: 065
     Dates: start: 2021, end: 2022

REACTIONS (9)
  - Loss of consciousness [Unknown]
  - Tardive dyskinesia [Unknown]
  - Nervous system disorder [Unknown]
  - Drug level increased [Unknown]
  - Nausea [Unknown]
  - Vomiting [Unknown]
  - Fatigue [Unknown]
  - Drug interaction [Unknown]
  - Product use in unapproved indication [Unknown]

NARRATIVE: CASE EVENT DATE: 20190101
